FAERS Safety Report 5262705-2 (Version None)
Quarter: 2007Q1

REPORT INFORMATION
  Report Type: 
  Country: None (occurrence: None)
  Receive Date: 20070312
  Receipt Date: 20070301
  Transmission Date: 20070707
  Serious: Yes (Hospitalization)
  Sender: FDA-Public Use
  Company Number: FR-SANOFI-SYNTHELABO-F01200602371

PATIENT
  Sex: Female

DRUGS (4)
  1. LASIX [Concomitant]
  2. FLUOROURACIL [Suspect]
     Dosage: 250 MG/M2/DAY, 7 DAYS A WEEK FOR 5 WEEK
     Route: 042
     Dates: start: 20060821, end: 20060827
  3. RADIOTHERAPY [Concomitant]
     Dosage: UNK
  4. OXALIPLATIN [Suspect]
     Indication: PANCREATIC CARCINOMA
     Route: 042
     Dates: start: 20050822, end: 20050822

REACTIONS (3)
  - DEHYDRATION [None]
  - DIARRHOEA [None]
  - GENERAL PHYSICAL HEALTH DETERIORATION [None]
